FAERS Safety Report 20102462 (Version 2)
Quarter: 2022Q2

REPORT INFORMATION
  Report Type: Spontaneous
  Country: US (occurrence: US)
  Receive Date: 20211123
  Receipt Date: 20220502
  Transmission Date: 20220721
  Serious: No
  Sender: FDA-Public Use
  Company Number: US-PFIZER INC-202101588941

PATIENT
  Age: 82 Year
  Sex: Female
  Weight: 49.9 kg

DRUGS (2)
  1. METHOTREXATE SODIUM [Suspect]
     Active Substance: METHOTREXATE SODIUM
     Indication: Rheumatoid arthritis
     Dosage: 2.5 MG (EIGHT PILLS ONCE A WEEK ON SATURDAY ROUTE NOT SPECIFIED)
     Dates: start: 1997
  2. METHOTREXATE SODIUM [Suspect]
     Active Substance: METHOTREXATE SODIUM
     Dosage: 2.5 MG, PILLS EVERY SATURDAY(METHOTREXATE: STATED THAT SHE WENT FROM EIGHT PILLS TO SIX PILLS)
     Dates: start: 2020

REACTIONS (2)
  - Condition aggravated [Not Recovered/Not Resolved]
  - Drug ineffective [Not Recovered/Not Resolved]

NARRATIVE: CASE EVENT DATE: 20200101
